FAERS Safety Report 22619628 (Version 1)
Quarter: 2023Q2

REPORT INFORMATION
  Report Type: Spontaneous
  Country: US (occurrence: US)
  Receive Date: 20230620
  Receipt Date: 20230620
  Transmission Date: 20230721
  Serious: No
  Sender: FDA-Public Use
  Company Number: US-SA-SAC20230616000677

PATIENT
  Age: 7 Year
  Sex: Male

DRUGS (2)
  1. ALPROLIX [Suspect]
     Active Substance: EFTRENONACOG ALFA
     Indication: Haemorrhage
     Dosage: INFUSE 890/2000 UNITS (+/-10%) AS DIRECTED
     Route: 042
  2. ALPROLIX [Suspect]
     Active Substance: EFTRENONACOG ALFA
     Indication: Haemorrhage
     Dosage: INFUSE 890/2000 UNITS (+/-10%) AS DIRECTED
     Route: 042

REACTIONS (1)
  - Head injury [Recovering/Resolving]

NARRATIVE: CASE EVENT DATE: 20230605
